FAERS Safety Report 20935234 (Version 4)
Quarter: 2022Q4

REPORT INFORMATION
  Report Type: Spontaneous
  Country: JP (occurrence: JP)
  Receive Date: 20220608
  Receipt Date: 20221110
  Transmission Date: 20230112
  Serious: Yes (Other)
  Sender: FDA-Public Use
  Company Number: JP-JNJFOC-20220608381

PATIENT
  Age: 87 Year
  Sex: Male

DRUGS (10)
  1. DARZALEX [Suspect]
     Active Substance: DARATUMUMAB
     Indication: Primary amyloidosis
     Dosage: DOSE UNKNOWN
     Route: 041
     Dates: start: 20190912, end: 20200103
  2. DARZALEX [Suspect]
     Active Substance: DARATUMUMAB
     Dosage: DOSE UNKNOWN
     Route: 041
     Dates: start: 20200228, end: 20201218
  3. LENALIDOMIDE [Suspect]
     Active Substance: LENALIDOMIDE
     Indication: Primary amyloidosis
     Route: 048
     Dates: start: 20190905, end: 2019
  4. LENALIDOMIDE [Suspect]
     Active Substance: LENALIDOMIDE
     Route: 048
     Dates: start: 20191206, end: 20200103
  5. LENALIDOMIDE [Suspect]
     Active Substance: LENALIDOMIDE
     Route: 048
     Dates: start: 20200228, end: 20201218
  6. DEXAMETHASONE [Suspect]
     Active Substance: DEXAMETHASONE
     Indication: Primary amyloidosis
     Dosage: DOSE UNKNOWN
     Route: 065
     Dates: end: 20200103
  7. DEXAMETHASONE [Suspect]
     Active Substance: DEXAMETHASONE
     Indication: Primary amyloidosis
     Dosage: DOSE UNKNOWN
     Route: 065
     Dates: start: 20200228, end: 20201218
  8. DEXAMETHASONE [Suspect]
     Active Substance: DEXAMETHASONE
     Indication: Primary amyloidosis
     Dosage: DOSE UNKNOWN
     Route: 065
     Dates: start: 20210120
  9. ELOTUZUMAB [Concomitant]
     Active Substance: ELOTUZUMAB
     Indication: Primary amyloidosis
     Dosage: DOSE UNKNOWN
     Route: 041
     Dates: start: 20210120
  10. POMALIDOMIDE [Concomitant]
     Active Substance: POMALIDOMIDE
     Indication: Primary amyloidosis
     Route: 048
     Dates: start: 20210120

REACTIONS (4)
  - Cardiac failure congestive [Unknown]
  - Orthostatic hypotension [Recovering/Resolving]
  - Headache [Recovering/Resolving]
  - Gastric mucosal lesion [Unknown]

NARRATIVE: CASE EVENT DATE: 20190918
